FAERS Safety Report 16089459 (Version 1)
Quarter: 2019Q1

REPORT INFORMATION
  Report Type: Spontaneous
  Country: US (occurrence: US)
  Receive Date: 20190317
  Receipt Date: 20190317
  Transmission Date: 20190418
  Serious: No
  Sender: FDA-Public Use
  Company Number: None

PATIENT
  Age: 31 Year
  Sex: Male
  Weight: 58.5 kg

DRUGS (3)
  1. KRATOM [Suspect]
     Active Substance: HERBALS\MITRAGYNINE
     Indication: DEPRESSION
     Dosage: ?          QUANTITY:2 TABLESPOON(S);?
     Route: 048
     Dates: start: 20170102, end: 20190308
  2. SUBOXONE [Concomitant]
     Active Substance: BUPRENORPHINE HYDROCHLORIDE\NALOXONE HYDROCHLORIDE
  3. MIRTAZAPINE. [Concomitant]
     Active Substance: MIRTAZAPINE

REACTIONS (3)
  - Withdrawal syndrome [None]
  - Drug dependence [None]
  - Adulterated product [None]

NARRATIVE: CASE EVENT DATE: 20190308
